FAERS Safety Report 7602709-5 (Version None)
Quarter: 2011Q3

REPORT INFORMATION
  Report Type: 
  Country: None (occurrence: None)
  Receive Date: 20110701
  Receipt Date: 20110621
  Transmission Date: 20111222
  Serious: Yes (Life-Threatening, Other)
  Sender: FDA-Public Use
  Company Number: FK201101226

PATIENT
  Age: 69 Year
  Sex: Male
  Weight: 105 kg

DRUGS (1)
  1. BACITRACIN [Suspect]
     Indication: WOUND TREATMENT
     Dosage: 50000 USP UNITS, IN 10ML SODIUM CHLORIDE, OTHER

REACTIONS (2)
  - BLOOD PRESSURE FLUCTUATION [None]
  - ANAPHYLACTIC REACTION [None]
